FAERS Safety Report 11825129 (Version 4)
Quarter: 2016Q1

REPORT INFORMATION
  Report Type: Spontaneous
  Country: JP (occurrence: JP)
  Receive Date: 20151211
  Receipt Date: 20160129
  Transmission Date: 20160525
  Serious: Yes (Other)
  Sender: FDA-Public Use
  Company Number: JP-ASTRAZENECA-2015SF21316

PATIENT
  Age: 32434 Day
  Sex: Female

DRUGS (9)
  1. AMLODIPINE [Concomitant]
     Active Substance: AMLODIPINE BESYLATE
     Dates: start: 20151017
  2. RABEPRAZOLE [Concomitant]
     Active Substance: RABEPRAZOLE
  3. POLAPREZINC [Concomitant]
     Active Substance: POLAPREZINC
     Dates: end: 20150528
  4. MUCOSTA [Concomitant]
     Active Substance: REBAMIPIDE
     Dates: start: 20150529
  5. TOPALGIC [Concomitant]
     Active Substance: TRAMADOL
     Dates: end: 20150710
  6. OLMETEC [Concomitant]
     Active Substance: OLMESARTAN MEDOXOMIL
  7. SEROQUEL [Suspect]
     Active Substance: QUETIAPINE FUMARATE
     Indication: PRODUCT USED FOR UNKNOWN INDICATION
     Route: 048
     Dates: end: 20151116
  8. REMINYL [Concomitant]
     Active Substance: GALANTAMINE
  9. ZOPICLONE [Concomitant]
     Active Substance: ZOPICLONE

REACTIONS (2)
  - Hyperglycaemia [Recovering/Resolving]
  - Intentional product misuse [Unknown]

NARRATIVE: CASE EVENT DATE: 20151116
